FAERS Safety Report 8141580-2 (Version None)
Quarter: 2012Q1

REPORT INFORMATION
  Report Type: 
  Country: None (occurrence: None)
  Receive Date: 20120216
  Receipt Date: 20120116
  Transmission Date: 20120608
  Serious: No
  Sender: FDA-Public Use
  Company Number: CA-JNJFOC-20120205548

PATIENT
  Sex: Female
  Weight: 111 kg

DRUGS (3)
  1. REMICADE [Suspect]
     Indication: COLITIS ULCERATIVE
     Route: 042
     Dates: start: 20110214
  2. IMURAN [Concomitant]
     Route: 048
  3. MINESTRIN [Concomitant]
     Route: 065

REACTIONS (2)
  - HERPES ZOSTER [None]
  - ERYTHEMA [None]
